FAERS Safety Report 24262561 (Version 3)
Quarter: 2024Q4

REPORT INFORMATION
  Report Type: Spontaneous
  Country: JP (occurrence: JP)
  Receive Date: 20240829
  Receipt Date: 20241022
  Transmission Date: 20250115
  Serious: Yes (Death, Hospitalization, Other)
  Sender: BAXTER
  Company Number: JP-BAXTERJP-2024BAX023431AA

PATIENT
  Sex: Female

DRUGS (16)
  1. DOXIL [Suspect]
     Active Substance: DOXORUBICIN HYDROCHLORIDE
     Indication: Ovarian cancer stage III
     Dosage: FIRST DOSE OF PLD AT 54 MG/BODY (DAY 1)
     Route: 065
     Dates: start: 20220729
  2. DOXIL [Suspect]
     Active Substance: DOXORUBICIN HYDROCHLORIDE
     Indication: Endometrial cancer
     Dosage: 67MG/BODY ONCE A MONTH
     Route: 065
     Dates: start: 20220921, end: 20221226
  3. DOCETAXEL [Suspect]
     Active Substance: DOCETAXEL
     Indication: Ovarian cancer stage III
     Dosage: SIX CYCLES OF TC THERAPY WERE PERFORMED WITH THE AIM OF INDUCING REMISSION, ACHIEVING A COMPLETE RES
     Route: 065
  4. DOCETAXEL [Suspect]
     Active Substance: DOCETAXEL
     Indication: Endometrial cancer
     Dosage: TC+BEV THERAPY WAS INITIATED
     Route: 065
  5. CYCLOPHOSPHAMIDE [Suspect]
     Active Substance: CYCLOPHOSPHAMIDE
     Indication: Endometrial cancer
     Dosage: SIX CYCLES OF TC THERAPY WERE PERFORMED WITH THE AIM OF INDUCING REMISSION, ACHIEVING A COMPLETE RES
     Route: 065
  6. CYCLOPHOSPHAMIDE [Suspect]
     Active Substance: CYCLOPHOSPHAMIDE
     Indication: Ovarian cancer stage III
     Dosage: TC+BEV THERAPY WAS INITIATED
     Route: 065
  7. BEVACIZUMAB [Suspect]
     Active Substance: BEVACIZUMAB
     Indication: Ovarian cancer stage III
     Dosage: AT 690 MG/BODY
     Route: 065
     Dates: start: 20220729
  8. BEVACIZUMAB [Suspect]
     Active Substance: BEVACIZUMAB
     Indication: Endometrial cancer
     Dosage: UNK
     Route: 065
  9. GEMCITABINE [Suspect]
     Active Substance: GEMCITABINE
     Indication: Ovarian cancer stage III
     Dosage: THE FIRST DOSE IN THE FIRST CYCLE OF GEMCITABINE THERAPY WAS GIVEN AT 1328 MG/BODY
     Route: 065
     Dates: start: 20230301
  10. GEMCITABINE [Suspect]
     Active Substance: GEMCITABINE
     Indication: Endometrial cancer
     Dosage: THE FIRST DOSE IN THE SECOND CYCLE OF GEMCITABINE THERAPY WAS GIVEN AT 1328 MG/BODY
     Route: 065
     Dates: start: 20230329
  11. GEMCITABINE [Suspect]
     Active Substance: GEMCITABINE
     Dosage: THE THIRD DOSE IN THE SECOND CYCLE OF GEMCITABINE THERAPY WAS GIVEN AT  1341 MG/BODY
     Route: 065
     Dates: start: 20230412
  12. GEMCITABINE [Suspect]
     Active Substance: GEMCITABINE
     Dosage: THE FIRST DOSE IN THE THIRD CYCLE OF GEMCITABINE THERAPY WAS GIVEN AT 1354 MG/BODY
     Route: 065
     Dates: start: 20230426
  13. GEMCITABINE [Suspect]
     Active Substance: GEMCITABINE
     Dosage: THE SECOND DOSE IN THE THIRD CYCLE OF GEMCITABINE THERAPY WAS GIVEN AT  1354 MG/BODY
     Route: 065
     Dates: start: 20230510
  14. GEMCITABINE [Suspect]
     Active Substance: GEMCITABINE
     Dosage: THE FIRST DOSE IN THE FOURTH CYCLE OF GEMCITABINE THERAPY WAS GIVEN AT  1366 MG/BODY
     Route: 065
     Dates: start: 20230524
  15. IRINOTECAN [Suspect]
     Active Substance: IRINOTECAN
     Indication: Ovarian cancer stage III
     Dosage: THE FIRST DOSE IN THE FIRST CYCLE OF IRINOTECAN (CPT) WAS GIVEN AT 136  MG/BODY.
     Route: 065
     Dates: start: 20230607
  16. IRINOTECAN [Suspect]
     Active Substance: IRINOTECAN
     Indication: Endometrial cancer
     Dosage: THE SECOND DOSE IN THE FIRST CYCLE OF CPT WAS GIVEN AT 136 MG/BODY.
     Route: 065
     Dates: start: 20230614

REACTIONS (6)
  - Pneumonia bacterial [Fatal]
  - Acute myeloid leukaemia [Unknown]
  - Myelodysplastic syndrome [Unknown]
  - Cardiotoxicity [Unknown]
  - Pelvic mass [Unknown]
  - Stomatitis [Unknown]

NARRATIVE: CASE EVENT DATE: 20220905
